FAERS Safety Report 4656410-0 (Version None)
Quarter: 2005Q2

REPORT INFORMATION
  Report Type: 
  Country: None (occurrence: None)
  Receive Date: 20050505
  Receipt Date: 20050422
  Transmission Date: 20051028
  Serious: Yes (Hospitalization)
  Sender: FDA-Public Use
  Company Number: 2005RL000037

PATIENT
  Age: 45 Year
  Sex: Female

DRUGS (2)
  1. PROPAFENONE HYDROCHLORIDE (PROPAFENONE HYDROCHLORIDE) (150 MG) [Suspect]
     Indication: SUICIDE ATTEMPT
     Dosage: 1500 MG; X1; PO
     Route: 048
     Dates: start: 20050327, end: 20050327
  2. SODIUM CHLORIDE 0.9% [Suspect]
     Indication: SUICIDE ATTEMPT
     Dosage: X1; PO
     Route: 048
     Dates: start: 20050327, end: 20050327

REACTIONS (4)
  - DIARRHOEA [None]
  - OVERDOSE [None]
  - SUICIDE ATTEMPT [None]
  - VOMITING [None]
